FAERS Safety Report 6982230-8 (Version None)
Quarter: 2010Q3

REPORT INFORMATION
  Report Type: 
  Country: None (occurrence: None)
  Receive Date: 20100914
  Receipt Date: 20100511
  Transmission Date: 20110219
  Serious: No
  Sender: FDA-Public Use
  Company Number: US-PFIZER INC-2009253016

PATIENT
  Sex: Female
  Weight: 68 kg

DRUGS (2)
  1. LYRICA [Suspect]
     Indication: POST HERPETIC NEURALGIA
     Dosage: UNK
  2. SIMVASTATIN [Concomitant]
     Dosage: UNK

REACTIONS (2)
  - INFLAMMATION [None]
  - OEDEMA PERIPHERAL [None]
